FAERS Safety Report 14814923 (Version 5)
Quarter: 2019Q1

REPORT INFORMATION
  Report Type: Spontaneous
  Country: JP (occurrence: JP)
  Receive Date: 20180426
  Receipt Date: 20190329
  Transmission Date: 20190417
  Serious: Yes (Hospitalization, Other)
  Sender: FDA-Public Use
  Company Number: JP-BRISTOL-MYERS SQUIBB COMPANY-BMS-2018-037499

PATIENT
  Age: 51 Year
  Sex: Male
  Weight: 63.2 kg

DRUGS (3)
  1. OPDIVO [Suspect]
     Active Substance: NIVOLUMAB
     Indication: HEAD AND NECK CANCER
     Dosage: 3 MILLIGRAM/KILOGRAM
     Route: 041
     Dates: start: 20170922, end: 20180330
  2. CALCIUM ASPARTATE [Concomitant]
     Active Substance: CALCIUM ASPARTATE
     Indication: PRODUCT USED FOR UNKNOWN INDICATION
     Dosage: 400 MILLIGRAM
     Route: 048
     Dates: start: 20171124
  3. CELLCEPT [Concomitant]
     Active Substance: MYCOPHENOLATE MOFETIL\MYCOPHENOLATE MOFETIL HYDROCHLORIDE
     Indication: PRODUCT USED FOR UNKNOWN INDICATION
     Dosage: UNK
     Route: 048
     Dates: start: 20180416

REACTIONS (19)
  - Diarrhoea [Recovering/Resolving]
  - Erythema multiforme [Recovering/Resolving]
  - Stomatitis [Recovering/Resolving]
  - Metastases to lung [Unknown]
  - Vomiting [Recovering/Resolving]
  - Hepatic function abnormal [Recovered/Resolved]
  - Rash [Recovering/Resolving]
  - Malaise [Recovering/Resolving]
  - Adrenal insufficiency [Recovering/Resolving]
  - Sepsis [Recovered/Resolved]
  - Metastases to pancreas [Unknown]
  - Hypocalcaemia [Recovered/Resolved]
  - Erythema [Recovering/Resolving]
  - Cough [Recovered/Resolved]
  - Electrolyte imbalance [Recovered/Resolved]
  - Jaundice [Recovering/Resolving]
  - Hypopituitarism [Recovering/Resolving]
  - Pyrexia [Recovered/Resolved]
  - Otitis externa [Recovered/Resolved]

NARRATIVE: CASE EVENT DATE: 20170925
